FAERS Safety Report 6389690-4 (Version None)
Quarter: 2009Q4

REPORT INFORMATION
  Report Type: 
  Country: None (occurrence: None)
  Receive Date: 20091006
  Receipt Date: 20091001
  Transmission Date: 20100525
  Serious: Yes (Hospitalization, Other)
  Sender: FDA-Public Use
  Company Number: US-BRISTOL-MYERS SQUIBB COMPANY-14803233

PATIENT
  Age: 52 Year
  Sex: Male

DRUGS (2)
  1. COUMADIN [Suspect]
     Dosage: ALSO FROM 06FEB09
     Dates: start: 20081101
  2. LOVENOX [Suspect]
     Indication: THROMBOSIS PROPHYLAXIS
     Dosage: SOL FOR INJ; ALSO 28APR09 TO 06MAY09; 1WK 2 D
     Dates: start: 20081120, end: 20081122

REACTIONS (2)
  - CEREBROVASCULAR ACCIDENT [None]
  - PULMONARY INFARCTION [None]
